FAERS Safety Report 22207255 (Version 1)
Quarter: 2023Q2

REPORT INFORMATION
  Report Type: Spontaneous
  Country: US (occurrence: US)
  Receive Date: 20230413
  Receipt Date: 20230413
  Transmission Date: 20230722
  Serious: Yes (Death, Other)
  Sender: FDA-Public Use
  Company Number: US-drreddys-LIT/USA/23/0163678

PATIENT
  Age: 74 Year
  Sex: Male

DRUGS (10)
  1. PANTOPRAZOLE SODIUM [Suspect]
     Active Substance: PANTOPRAZOLE SODIUM
     Indication: Product used for unknown indication
  2. MERCAPTOPURINE [Suspect]
     Active Substance: MERCAPTOPURINE
     Indication: Product used for unknown indication
  3. CARVEDILOL [Suspect]
     Active Substance: CARVEDILOL
     Indication: Product used for unknown indication
  4. SORAFENIB [Suspect]
     Active Substance: SORAFENIB
     Indication: Malignant peritoneal neoplasm
  5. AZACITIDINE [Suspect]
     Active Substance: AZACITIDINE
     Indication: Product used for unknown indication
  6. FUROSEMIDE [Suspect]
     Active Substance: FUROSEMIDE
     Indication: Respiratory disorder
  7. VENETOCLAX [Suspect]
     Active Substance: VENETOCLAX
     Indication: Product used for unknown indication
  8. LISINOPRIL [Suspect]
     Active Substance: LISINOPRIL
     Indication: Supine hypertension
  9. ASPIRIN [Suspect]
     Active Substance: ASPIRIN
     Indication: Product used for unknown indication
  10. DULOXETINE [Suspect]
     Active Substance: DULOXETINE
     Indication: Product used for unknown indication

REACTIONS (10)
  - Escherichia bacteraemia [Fatal]
  - Dyspnoea exertional [Unknown]
  - Autonomic neuropathy [Unknown]
  - Orthostatic hypotension [Unknown]
  - Supine hypertension [Unknown]
  - Myocardial ischaemia [Unknown]
  - Norepinephrine increased [Unknown]
  - Myeloid leukaemia [Unknown]
  - Therapy partial responder [Unknown]
  - Myelodysplastic syndrome with single lineage dysplasia [Unknown]
